FAERS Safety Report 5031725-5 (Version None)
Quarter: 2006Q2

REPORT INFORMATION
  Report Type: 
  Country: None (occurrence: None)
  Receive Date: 20060616
  Receipt Date: 20060530
  Transmission Date: 20061013
  Serious: Yes (Other)
  Sender: FDA-Public Use
  Company Number: US200605006815

PATIENT
  Age: 54 Year
  Sex: Female

DRUGS (4)
  1. PROZAC [Suspect]
     Indication: DEPRESSION
     Dosage: 10 MG
     Dates: start: 20000101, end: 20060101
  2. CYMBALTA [Suspect]
     Indication: DEPRESSION
     Dosage: 30 MG
     Dates: start: 20060501
  3. FEMHRT [Concomitant]
  4. DIAMOX /CAN/ (ACETAZOLAMIDE) [Concomitant]

REACTIONS (9)
  - ABNORMAL SENSATION IN EYE [None]
  - CONTACT LENS COMPLICATION [None]
  - CORNEAL TRANSPLANT [None]
  - DRUG INEFFECTIVE [None]
  - EYE DISORDER [None]
  - EYE INFECTION [None]
  - INSOMNIA [None]
  - NERVOUSNESS [None]
  - PAIN [None]
